FAERS Safety Report 8887154 (Version 3)
Quarter: 2012Q4

REPORT INFORMATION
  Report Type: 
  Country: BR (occurrence: BR)
  Receive Date: 20121105
  Receipt Date: 20121218
  Transmission Date: 20130627
  Serious: Yes (Hospitalization, Other)
  Sender: FDA-Public Use
  Company Number: BR-ROCHE-1152398

PATIENT
  Age: 68 Year
  Sex: Female

DRUGS (2)
  1. LUCENTIS [Suspect]
     Indication: AGE-RELATED MACULAR DEGENERATION
     Dosage: strength: 10 mg/ml
     Route: 050
     Dates: start: 20121016
  2. LUCENTIS [Suspect]
     Indication: MACULAR FIBROSIS

REACTIONS (1)
  - Psychotic disorder [Recovered/Resolved]
